FAERS Safety Report 5681299-0 (Version None)
Quarter: 2008Q1

REPORT INFORMATION
  Report Type: 
  Country: None (occurrence: None)
  Receive Date: 20080326
  Receipt Date: 20070719
  Transmission Date: 20080703
  Serious: Yes (Hospitalization)
  Sender: FDA-Public Use
  Company Number: US-BAYER-US-2007-001634

PATIENT
  Age: 26 Year
  Sex: Female
  Weight: 79 kg

DRUGS (3)
  1. MIRENA [Suspect]
     Indication: CONTRACEPTION
     Route: 015
     Dates: start: 20060801, end: 20061130
  2. EFFEXOR [Concomitant]
     Dosage: UNIT DOSE: 150 MG
  3. KLONOPIN [Concomitant]
     Dosage: UNIT DOSE: 1 MG

REACTIONS (2)
  - AMENORRHOEA [None]
  - OVARIAN CYST RUPTURED [None]
